FAERS Safety Report 9420529 (Version 1)
Quarter: 2013Q3

REPORT INFORMATION
  Report Type: Spontaneous
  Country: US (occurrence: US)
  Receive Date: 20130725
  Receipt Date: 20130725
  Transmission Date: 20140515
  Serious: No
  Sender: FDA-Public Use
  Company Number: US-ABBOTT-13P-163-1091719-00

PATIENT
  Sex: Female
  Weight: 49.94 kg

DRUGS (1)
  1. SYNTHROID [Suspect]
     Indication: THYROID HORMONE REPLACEMENT THERAPY
     Dosage: UNKNOWN
     Dates: start: 1983, end: 1983

REACTIONS (2)
  - Dizziness [Recovered/Resolved]
  - Loss of consciousness [Recovered/Resolved]
